FAERS Safety Report 20775122 (Version 19)
Quarter: 2023Q4

REPORT INFORMATION
  Report Type: Spontaneous
  Country: US (occurrence: US)
  Receive Date: 20220502
  Receipt Date: 20231129
  Transmission Date: 20240110
  Serious: No
  Sender: FDA-Public Use
  Company Number: US-PFIZER INC-202200591706

PATIENT
  Age: 57 Year
  Sex: Female

DRUGS (12)
  1. IBRANCE [Suspect]
     Active Substance: PALBOCICLIB
     Indication: Breast cancer metastatic
     Dosage: 125 MG, CYCLIC (DAILY FOR 21 DAYS FOLLOWED BY 7 DAYS OFF / EVERY 28 DAY CYCLE)
     Route: 048
     Dates: start: 20220419
  2. BERBERINE COMPLEX [Concomitant]
     Dosage: UNK
  3. BIOTIN [Concomitant]
     Active Substance: BIOTIN
     Dosage: 10 MG
  4. DIETARY SUPPLEMENT\HERBALS\INDIAN FRANKINCENSE [Concomitant]
     Active Substance: DIETARY SUPPLEMENT\HERBALS\INDIAN FRANKINCENSE
     Dosage: POW
  5. CALCIUM [Concomitant]
     Active Substance: CALCIUM
     Dosage: 600 MG
  6. LETROZOLE [Concomitant]
     Active Substance: LETROZOLE
     Dosage: 2.5 MG
  7. QUERCETIN [Concomitant]
     Active Substance: QUERCETIN
     Dosage: 250 MG
  8. HERBALS\TURMERIC [Concomitant]
     Active Substance: HERBALS\TURMERIC
     Dosage: 500 MG
  9. BIOTIN\CALCIUM PANTOTHENATE\CHOLINE BITARTRATE\CYANOCOBALAMIN\FOLIC AC [Concomitant]
     Active Substance: BIOTIN\CALCIUM PANTOTHENATE\CHOLINE BITARTRATE\CYANOCOBALAMIN\FOLIC ACID\INOSITOL\NIACINAMIDE\PYRIDO
     Dosage: UNK
  10. VITAMIN C [Concomitant]
     Active Substance: ASCORBIC ACID
     Dosage: 500 MG
  11. CHOLECALCIFEROL [Concomitant]
     Active Substance: CHOLECALCIFEROL
     Dosage: 400 IU
  12. LACTOBACILLUS ACIDOPHILUS [Concomitant]
     Active Substance: LACTOBACILLUS ACIDOPHILUS
     Dosage: UNK

REACTIONS (20)
  - Dry skin [Not Recovered/Not Resolved]
  - Fatigue [Unknown]
  - Alopecia [Not Recovered/Not Resolved]
  - Dry eye [Not Recovered/Not Resolved]
  - Stomatitis [Unknown]
  - Decreased appetite [Unknown]
  - Red blood cell count decreased [Unknown]
  - White blood cell count decreased [Unknown]
  - Anaemia [Unknown]
  - Hot flush [Not Recovered/Not Resolved]
  - Dyspepsia [Not Recovered/Not Resolved]
  - Weight increased [Not Recovered/Not Resolved]
  - Nerve injury [Unknown]
  - Hypoaesthesia [Unknown]
  - Paraesthesia [Unknown]
  - Pain in extremity [Unknown]
  - Burning sensation [Unknown]
  - Gastrooesophageal reflux disease [Not Recovered/Not Resolved]
  - Hair texture abnormal [Not Recovered/Not Resolved]
  - Product dose omission issue [Unknown]

NARRATIVE: CASE EVENT DATE: 20220101
